FAERS Safety Report 6261362-6 (Version None)
Quarter: 2009Q3

REPORT INFORMATION
  Report Type: 
  Country: None (occurrence: None)
  Receive Date: 20090709
  Receipt Date: 20090708
  Transmission Date: 20100115
  Serious: Yes (Other)
  Sender: FDA-Public Use
  Company Number: US-PFIZER INC-2009219383

PATIENT
  Sex: Male
  Weight: 74.842 kg

DRUGS (8)
  1. CELEBREX [Suspect]
     Indication: ARTHRITIS
     Dates: end: 20090523
  2. AMLODIPINE BESYLATE [Suspect]
     Indication: HYPERTENSION
     Dosage: 5 MG, UNK
  3. NEXIUM [Concomitant]
     Dosage: UNK
  4. CLARINEX [Concomitant]
     Dosage: UNK
  5. FLUTICASONE [Concomitant]
     Dosage: UNK
     Route: 045
  6. TRICOR [Concomitant]
     Dosage: UNK
  7. MESALAMINE [Concomitant]
     Dosage: UNK
     Route: 054
  8. VITAMINS [Concomitant]
     Dosage: UNK

REACTIONS (3)
  - BODY HEIGHT DECREASED [None]
  - GASTROENTERITIS RADIATION [None]
  - HYPERTENSION [None]
